FAERS Safety Report 8933462 (Version 1)
Quarter: 2012Q4

REPORT INFORMATION
  Report Type: 
  Country: GB (occurrence: GB)
  Receive Date: 20121128
  Receipt Date: 20121128
  Transmission Date: 20130627
  Serious: Yes (Other)
  Sender: FDA-Public Use
  Company Number: GB-MYLANLABS-2012S1023819

PATIENT
  Sex: Male

DRUGS (2)
  1. CITALOPRAM [Suspect]
     Indication: PRODUCT USED FOR UNKNOWN INDICATION
     Route: 048
  2. EBIXA [Suspect]
     Indication: DEMENTIA
     Route: 048

REACTIONS (3)
  - Mental impairment [Recovering/Resolving]
  - Abnormal behaviour [Recovering/Resolving]
  - Wrong technique in drug usage process [Recovering/Resolving]
